FAERS Safety Report 20441041 (Version 1)
Quarter: 2022Q1

REPORT INFORMATION
  Report Type: Spontaneous
  Country: GB (occurrence: GB)
  Receive Date: 20220208
  Receipt Date: 20220208
  Transmission Date: 20220423
  Serious: Yes (Disabling, Other)
  Sender: FDA-Public Use
  Company Number: GB-MHRA-EYC 00252629

PATIENT
  Age: 47 Year
  Sex: Female
  Weight: 55.33 kg

DRUGS (1)
  1. CITALOPRAM [Suspect]
     Active Substance: CITALOPRAM HYDROBROMIDE
     Indication: Perinatal depression
     Dosage: 20 MILLIGRAM
     Route: 048
     Dates: start: 200503, end: 20170301

REACTIONS (12)
  - Suicidal ideation [Not Recovered/Not Resolved]
  - Withdrawal syndrome [Not Recovered/Not Resolved]
  - Depression [Not Recovered/Not Resolved]
  - Agitation [Not Recovered/Not Resolved]
  - Anger [Not Recovered/Not Resolved]
  - Insomnia [Not Recovered/Not Resolved]
  - Balance disorder [Not Recovered/Not Resolved]
  - Fatigue [Not Recovered/Not Resolved]
  - Headache [Not Recovered/Not Resolved]
  - Depressed mood [Not Recovered/Not Resolved]
  - Apathy [Not Recovered/Not Resolved]
  - Seizure [Recovered/Resolved]

NARRATIVE: CASE EVENT DATE: 20170301
